FAERS Safety Report 25586562 (Version 1)
Quarter: 2025Q3

REPORT INFORMATION
  Report Type: Spontaneous
  Country: EU (occurrence: EU)
  Receive Date: 20250721
  Receipt Date: 20250721
  Transmission Date: 20251021
  Serious: Yes (Hospitalization, Other)
  Sender: REGENERON
  Company Number: None

PATIENT
  Age: 61 Year
  Sex: Male

DRUGS (5)
  1. PRALUENT [Suspect]
     Active Substance: ALIROCUMAB
     Indication: Dyslipidaemia
     Dosage: 150 MG, QOW, SOLUTION FOR INJECTION
     Route: 058
  2. PRALUENT [Suspect]
     Active Substance: ALIROCUMAB
     Indication: Coronary artery disease
  3. MIBEZET [Concomitant]
     Indication: Drug intolerance
     Dosage: 10 MG, QD
     Route: 048
     Dates: start: 202506
  4. MIBEZET [Concomitant]
     Indication: Dyslipidaemia
  5. MIBEZET [Concomitant]
     Indication: Coronary artery disease

REACTIONS (1)
  - Blood creatine phosphokinase increased [Unknown]

NARRATIVE: CASE EVENT DATE: 20250702
